FAERS Safety Report 9129295 (Version 1)
Quarter: 2013Q1

REPORT INFORMATION
  Report Type: Report from Study
  Country: US (occurrence: US)
  Receive Date: 20130228
  Receipt Date: 20130228
  Transmission Date: 20140127
  Serious: No
  Sender: FDA-Public Use
  Company Number: US-ABBOTT-13P-163-1044673-00

PATIENT
  Sex: Male
  Weight: 102.15 kg

DRUGS (5)
  1. ANDROGEL [Suspect]
     Indication: BLOOD TESTOSTERONE DECREASED
     Dosage: 1 PUMP ACTUATION
     Dates: start: 201204
  2. ANDROGEL [Suspect]
     Dosage: ONE PUMP QOD ALTERNATING WITH TWO PUMP ACTUATION QOD
     Dates: start: 2012, end: 201301
  3. ANDROGEL [Suspect]
     Dosage: 2 PUMP ACTUATIONS
     Dates: start: 201301
  4. XYZAL [Concomitant]
     Indication: ASTHMA
  5. INHALER [Concomitant]
     Indication: ASTHMA

REACTIONS (1)
  - Drug ineffective [Not Recovered/Not Resolved]
